FAERS Safety Report 22618556 (Version 1)
Quarter: 2023Q2

REPORT INFORMATION
  Report Type: Spontaneous
  Country: US (occurrence: JP)
  Receive Date: 20230620
  Receipt Date: 20230620
  Transmission Date: 20230722
  Serious: No
  Sender: FDA-Public Use
  Company Number: US-PFM-2022-08696

PATIENT
  Age: 3 Month
  Sex: Female

DRUGS (8)
  1. PROPRANOLOL HYDROCHLORIDE [Suspect]
     Active Substance: PROPRANOLOL HYDROCHLORIDE
     Indication: Infantile haemangioma
     Dosage: 0.5 MG/KG, BID (2/DAY)
     Route: 048
     Dates: start: 20221121, end: 20221123
  2. PROPRANOLOL HYDROCHLORIDE [Suspect]
     Active Substance: PROPRANOLOL HYDROCHLORIDE
     Dosage: 0.5MG/KG IN THE MORNING AND 1.0MG/KG IN THE EVENING
     Route: 048
     Dates: start: 20221124, end: 20221124
  3. PROPRANOLOL HYDROCHLORIDE [Suspect]
     Active Substance: PROPRANOLOL HYDROCHLORIDE
     Dosage: 1 MG/KG/12 HOURS
     Route: 048
     Dates: start: 20221125, end: 20221125
  4. PROPRANOLOL HYDROCHLORIDE [Suspect]
     Active Substance: PROPRANOLOL HYDROCHLORIDE
     Dosage: 0.75 MG/KG/12 HOURS
     Route: 048
     Dates: start: 20221126, end: 20221126
  5. PROPRANOLOL HYDROCHLORIDE [Suspect]
     Active Substance: PROPRANOLOL HYDROCHLORIDE
     Dosage: 0.5 MG/KG/DAY IN EVENING
     Route: 048
     Dates: start: 20221128, end: 20221128
  6. PROPRANOLOL HYDROCHLORIDE [Suspect]
     Active Substance: PROPRANOLOL HYDROCHLORIDE
     Dosage: 0.4MG/KG IN THE MORNING AND WAS ADMINISTERED AT 0.3MG/KG IN THE EVENING
     Route: 048
     Dates: start: 20221129, end: 20221129
  7. PROPRANOLOL HYDROCHLORIDE [Suspect]
     Active Substance: PROPRANOLOL HYDROCHLORIDE
     Dosage: 0.3 MG/KG/12 HOURS
     Route: 048
     Dates: start: 20221130, end: 20221130
  8. PROPRANOLOL HYDROCHLORIDE [Suspect]
     Active Substance: PROPRANOLOL HYDROCHLORIDE
     Dosage: 0.25 MG/KG/12 HOURS
     Route: 048
     Dates: start: 20221201

REACTIONS (1)
  - Bradycardia [Recovered/Resolved]

NARRATIVE: CASE EVENT DATE: 20221125
